FAERS Safety Report 19731239 (Version 1)
Quarter: 2021Q3

REPORT INFORMATION
  Report Type: Report from Study
  Country: US (occurrence: US)
  Receive Date: 20210821
  Receipt Date: 20210821
  Transmission Date: 20211014
  Serious: Yes (Other)
  Sender: FDA-Public Use
  Company Number: US-TAKEDA-US202022473

PATIENT
  Age: 65 Year
  Sex: Female

DRUGS (1)
  1. HUMAN NORMAL IMMUNOGLOBULIN; LIQUID [Suspect]
     Active Substance: HUMAN IMMUNOGLOBULIN G
     Indication: PRIMARY IMMUNODEFICIENCY SYNDROME
     Route: 042

REACTIONS (7)
  - Pneumonia pseudomonal [Unknown]
  - Parkinson^s disease [Unknown]
  - Infection [Unknown]
  - Hot flush [Unknown]
  - Dysphonia [Unknown]
  - Hiatus hernia [Unknown]
  - Weight increased [Unknown]

NARRATIVE: CASE EVENT DATE: 20200710
